FAERS Safety Report 6390619-3 (Version None)
Quarter: 2009Q4

REPORT INFORMATION
  Report Type: 
  Country: None (occurrence: None)
  Receive Date: 20091006
  Receipt Date: 20090930
  Transmission Date: 20100525
  Serious: Yes (Hospitalization)
  Sender: FDA-Public Use
  Company Number: US-AVENTIS-200915948EU

PATIENT
  Age: 60 Year
  Sex: Female

DRUGS (11)
  1. LASIX [Suspect]
     Dosage: DOSE: UNK
     Route: 048
  2. INVESTIGATIONAL DRUG [Concomitant]
     Indication: RHEUMATOID ARTHRITIS
     Route: 048
     Dates: start: 20080122
  3. INVESTIGATIONAL DRUG [Concomitant]
     Route: 048
     Dates: start: 20090902, end: 20090917
  4. METHOTREXATE [Concomitant]
  5. FOLIC ACID [Concomitant]
  6. ADVAIR DISKUS 100/50 [Concomitant]
  7. CARVEDILOL [Concomitant]
  8. MONTELUKAST SODIUM [Concomitant]
  9. WARFARIN SODIUM [Concomitant]
  10. LORTAB [Concomitant]
  11. PREDNISONE [Concomitant]

REACTIONS (1)
  - RENAL FAILURE ACUTE [None]
